FAERS Safety Report 8587027 (Version 6)
Quarter: 2012Q4

REPORT INFORMATION
  Report Type: 
  Country: GB (occurrence: GB)
  Receive Date: 20120530
  Receipt Date: 20121101
  Transmission Date: 20130627
  Serious: Yes (Death)
  Sender: FDA-Public Use
  Company Number: GB-PFIZER INC-2011026947

PATIENT
  Age: 36 Year
  Sex: Male
  Weight: 91.8 kg

DRUGS (10)
  1. CRIZOTINIB [Suspect]
     Indication: NON-SMALL CELL LUNG CANCER STAGE IV
     Dosage: 250 mg, 2x/day
     Route: 048
     Dates: start: 20110204, end: 20110204
  2. DOCETAXEL [Suspect]
     Indication: NON-SMALL CELL LUNG CANCER
     Dosage: 110 mg, every 3 weeks
     Route: 042
     Dates: start: 20100903, end: 20101216
  3. LANSOPRAZOLE [Concomitant]
     Indication: PROPHYLAXIS
     Dosage: 30 mg, 1x/day
     Route: 048
     Dates: start: 20101001
  4. PARACETAMOL [Concomitant]
     Indication: CANCER PAIN
     Dosage: 1 g, four times daily, as needed
     Route: 048
     Dates: start: 20101001
  5. DICLOFENAC [Concomitant]
     Indication: CANCER PAIN
     Dosage: 75 mg, 2x/day
     Route: 048
     Dates: start: 20101001
  6. ZOMORPH [Concomitant]
     Indication: CANCER PAIN
     Dosage: 60 mg, 1x/day
     Route: 048
     Dates: start: 20101206
  7. MOVICOL [Concomitant]
     Indication: CONSTIPATION
     Dosage: 1 DF, 4x/day
     Route: 048
     Dates: start: 20110201
  8. DEXAMETHASONE [Concomitant]
     Indication: BRAIN SWELLING
     Dosage: 4 mg, 1x/day
     Route: 048
     Dates: start: 20101216
  9. CO-DANTHRAMER [Concomitant]
     Indication: CONSTIPATION
     Dosage: 100 mg, 2x/day
     Route: 048
     Dates: start: 20110111
  10. ENOXAPARIN [Concomitant]
     Indication: DVT
     Dosage: 135 mg, 1x/day
     Route: 058
     Dates: start: 20110111

REACTIONS (2)
  - Deep vein thrombosis [Fatal]
  - Pulmonary embolism [Fatal]
